FAERS Safety Report 5337324-X (Version None)
Quarter: 2007Q2

REPORT INFORMATION
  Report Type: 
  Country: None (occurrence: None)
  Receive Date: 20070529
  Receipt Date: 20070517
  Transmission Date: 20071010
  Serious: Yes (Other)
  Sender: FDA-Public Use
  Company Number: JP-GENENTECH-239067

PATIENT

DRUGS (4)
  1. RITUXIMAB [Suspect]
     Indication: SYSTEMIC LUPUS ERYTHEMATOSUS
     Dosage: 1000 MG/BODY
     Route: 042
     Dates: start: 20050317, end: 20050331
  2. RITUXIMAB [Suspect]
     Dates: start: 20060614, end: 20060628
  3. RITUXIMAB [Suspect]
     Dates: start: 20070110, end: 20070124
  4. IMMUNOSUPPRESSANT NOS [Concomitant]
     Indication: DRUG USE FOR UNKNOWN INDICATION

REACTIONS (1)
  - SYSTEMIC LUPUS ERYTHEMATOSUS [None]
